FAERS Safety Report 7946739-2 (Version None)
Quarter: 2011Q4

REPORT INFORMATION
  Report Type: 
  Country: None (occurrence: None)
  Receive Date: 20111129
  Receipt Date: 20111111
  Transmission Date: 20120403
  Serious: Yes (Other)
  Sender: FDA-Public Use
  Company Number: PHHY2011NL099930

PATIENT
  Sex: Female
  Weight: 151 kg

DRUGS (8)
  1. TRAMADOL HCL [Concomitant]
     Dates: start: 20090101, end: 20100701
  2. GABAPENTIN [Concomitant]
     Dates: start: 20090101, end: 20100701
  3. ACETYLSALICYLZUUR [Concomitant]
     Dates: start: 20090101, end: 20100701
  4. METOPROLOL SUCCINATE [Suspect]
     Indication: HYPERTENSION
     Dosage: UNK UKN, UNK
     Route: 048
     Dates: start: 20090901, end: 20100601
  5. AMLODIPINE [Concomitant]
     Dates: start: 20090101, end: 20100701
  6. DIOVAN [Concomitant]
     Dates: start: 20090101, end: 20100701
  7. PANTOPRAZOLE SODIUM [Concomitant]
     Dates: start: 20090101, end: 20100701
  8. PERSANTIN [Concomitant]
     Dates: start: 20090101, end: 20100701

REACTIONS (5)
  - CEREBROVASCULAR ACCIDENT [None]
  - DIZZINESS [None]
  - CARDIAC DISORDER [None]
  - BLOOD PRESSURE SYSTOLIC INCREASED [None]
  - HYPERKERATOSIS [None]
